FAERS Safety Report 7285386-5 (Version None)
Quarter: 2011Q1

REPORT INFORMATION
  Report Type: 
  Country: None (occurrence: None)
  Receive Date: 20110121
  Receipt Date: 20050502
  Transmission Date: 20110831
  Serious: No
  Sender: FDA-Public Use
  Company Number: 007

PATIENT
  Sex: Female
  Weight: 58.9676 kg

DRUGS (2)
  1. FAZACLO ODT [Suspect]
     Indication: SCHIZOPHRENIA
     Dosage: 50 MG PO DAILY
     Route: 048
     Dates: start: 20050408, end: 20050415
  2. AMBIEN [Concomitant]

REACTIONS (3)
  - NIGHTMARE [None]
  - DYSKINESIA [None]
  - HEADACHE [None]
